FAERS Safety Report 8489415-2 (Version None)
Quarter: 2012Q3

REPORT INFORMATION
  Report Type: 
  Country: None (occurrence: None)
  Receive Date: 20120705
  Receipt Date: 20120626
  Transmission Date: 20120928
  Serious: Yes (Hospitalization)
  Sender: FDA-Public Use
  Company Number: FR-ASTRAZENECA-2012SE43613

PATIENT
  Age: 24812 Day
  Sex: Male

DRUGS (17)
  1. POTASSIUM CHLORIDE [Suspect]
     Indication: HYPOKALAEMIA
     Route: 048
     Dates: start: 20120217
  2. COUMADIN [Suspect]
     Route: 048
     Dates: start: 20120322
  3. ALFUZOSIN HCL [Suspect]
     Route: 048
     Dates: start: 20120217
  4. LYRICA [Suspect]
     Route: 048
     Dates: start: 20120217
  5. PREDNISONE TAB [Suspect]
     Indication: ALLERGIC GRANULOMATOUS ANGIITIS
     Dosage: DOSE DECREASED FROM 30 MG TO 10 MG PER DAY (DECREASE OF 5 MG EVERY 10 DAYS)
     Route: 048
     Dates: start: 20120302
  6. IMURAN [Suspect]
     Indication: ALLERGIC GRANULOMATOUS ANGIITIS
     Route: 048
     Dates: start: 20120302
  7. VITAMINE B1 B6 BAYER [Suspect]
     Route: 048
     Dates: start: 20120217
  8. CEFTRIAXONE [Suspect]
     Indication: SEPTIC SHOCK
     Route: 042
     Dates: start: 20120312
  9. LASIX [Suspect]
     Route: 048
     Dates: start: 20120217
  10. CORDARONE [Concomitant]
     Route: 048
  11. ATORVASTATIN [Suspect]
     Indication: HYPERCHOLESTEROLAEMIA
     Route: 048
     Dates: start: 20120217
  12. ACTONEL [Suspect]
     Indication: ALLERGIC GRANULOMATOUS ANGIITIS
     Route: 048
     Dates: start: 20120302
  13. CALCIDOSE VITAMINE D3 [Suspect]
     Indication: OSTEOPOROSIS
     Route: 048
     Dates: start: 20120302
  14. SYMBICORT [Suspect]
     Dosage: TWO INHALATIONS IN THE MORNING AND IN THE EVENING
     Route: 055
  15. COUMADIN [Suspect]
     Indication: ATRIAL FIBRILLATION
     Route: 048
     Dates: start: 20050101, end: 20120314
  16. BISOPROLOL FUMARATE [Suspect]
     Route: 048
  17. ROVAMYCINE [Suspect]
     Indication: SEPTIC SHOCK
     Route: 042
     Dates: start: 20120312, end: 20120316

REACTIONS (1)
  - ABDOMINAL WALL HAEMATOMA [None]
